FAERS Safety Report 18510540 (Version 2)
Quarter: 2020Q4

REPORT INFORMATION
  Report Type: Other
  Country: JP (occurrence: JP)
  Receive Date: 20201117
  Receipt Date: 20201118
  Transmission Date: 20210114
  Serious: Yes (Death, Hospitalization, Other)
  Sender: FDA-Public Use
  Company Number: JP-ROCHE-2714222

PATIENT
  Age: 74 Year
  Sex: Female

DRUGS (9)
  1. AVASTIN [Suspect]
     Active Substance: BEVACIZUMAB
     Dosage: UNCERTAIN DOSAGE AND SIX TCB THERAPY COURSES
     Route: 041
  2. AVASTIN [Suspect]
     Active Substance: BEVACIZUMAB
     Dosage: UNCERTAIN DOSAGE AND THREE SINGLE COURSES
     Route: 041
  3. CARBOPLATIN. [Concomitant]
     Active Substance: CARBOPLATIN
     Indication: SQUAMOUS CELL CARCINOMA OF THE CERVIX
     Dosage: UNCERTAIN DOSAGE AND THREE TCB THERAPY COURSES
     Route: 041
  4. PACLITAXEL. [Concomitant]
     Active Substance: PACLITAXEL
     Indication: SQUAMOUS CELL CARCINOMA OF THE CERVIX
     Dosage: UNCERTAIN DOSAGE AND THREE TCB THERAPY COURSES
     Route: 041
  5. AVASTIN [Suspect]
     Active Substance: BEVACIZUMAB
     Indication: SQUAMOUS CELL CARCINOMA OF THE CERVIX
     Dosage: UNCERTAIN DOSAGE AND THREE TCB THERAPY COURSES
     Route: 041
  6. CARBOPLATIN. [Concomitant]
     Active Substance: CARBOPLATIN
     Dosage: UNCERTAIN DOSAGE AND SIX TCB THERAPY COURSES
     Route: 041
  7. FLUOROURACIL. [Concomitant]
     Active Substance: FLUOROURACIL
     Indication: SQUAMOUS CELL CARCINOMA OF THE CERVIX
     Dosage: DOSAGE IS UNCERTAIN.
     Route: 041
  8. NEDAPLATIN [Concomitant]
     Active Substance: NEDAPLATIN
     Indication: SQUAMOUS CELL CARCINOMA OF THE CERVIX
     Dosage: DOSAGE IS UNCERTAIN.
     Route: 041
  9. PACLITAXEL. [Concomitant]
     Active Substance: PACLITAXEL
     Dosage: UNCERTAIN DOSAGE AND SIX TCB THERAPY COURSES
     Route: 041

REACTIONS (7)
  - Septic shock [Fatal]
  - Metastases to pelvis [Unknown]
  - Vaginal perforation [Unknown]
  - Fistula of small intestine [Unknown]
  - Intestinal prolapse [Unknown]
  - Urogenital fistula [Unknown]
  - Metastases to ovary [Unknown]
